FAERS Safety Report 5872532-0 (Version None)
Quarter: 2008Q3

REPORT INFORMATION
  Report Type: 
  Country: None (occurrence: None)
  Receive Date: 20080902
  Receipt Date: 20080826
  Transmission Date: 20090109
  Serious: Yes (Other)
  Sender: FDA-Public Use
  Company Number: 20070

PATIENT
  Age: 72 Year
  Sex: Male

DRUGS (1)
  1. PAMIDRONATE DISODIUM [Suspect]
     Indication: CERVICOBRACHIAL SYNDROME
     Dosage: 60 MG IV
     Route: 042

REACTIONS (2)
  - CHONDROCALCINOSIS PYROPHOSPHATE [None]
  - INFLUENZA LIKE ILLNESS [None]
